FAERS Safety Report 26027382 (Version 1)
Quarter: 2025Q4

REPORT INFORMATION
  Report Type: Spontaneous
  Country: US (occurrence: US)
  Receive Date: 20251111
  Receipt Date: 20251111
  Transmission Date: 20260117
  Serious: Yes (Death)
  Sender: IPSEN BIOPHARMACEUTICALS, INC.
  Company Number: US-IPSEN Group, Research and Development-2025-27891

PATIENT
  Age: 71 Year
  Sex: Female

DRUGS (5)
  1. SOMATULINE DEPOT [Suspect]
     Active Substance: LANREOTIDE ACETATE
     Indication: Breast cancer female
     Dosage: 120MG/.5M VIA DEEP SUBCUTANEOUS ROUTE
     Route: 058
     Dates: start: 202506
  2. SOMATULINE DEPOT [Suspect]
     Active Substance: LANREOTIDE ACETATE
     Indication: Neuroendocrine carcinoma
  3. TEMOZOLOMIDE [Concomitant]
     Active Substance: TEMOZOLOMIDE
  4. CAPECITABINE [Concomitant]
     Active Substance: CAPECITABINE
  5. CABOMETYX [Concomitant]
     Active Substance: CABOZANTINIB S-MALATE

REACTIONS (2)
  - Death [Fatal]
  - Off label use [Unknown]

NARRATIVE: CASE EVENT DATE: 20251026
